FAERS Safety Report 6210317 (Version 2)
Quarter: 2013Q2

REPORT INFORMATION
  Report Type: Spontaneous
  Country: US (occurrence: US)
  Receive Date: 20070108
  Receipt Date: 20130410
  Transmission Date: 20140414
  Serious: Yes (Other)
  Sender: FDA-Public Use
  Company Number: US-ELI_LILLY_AND_COMPANY-US_0501110257

PATIENT
  Sex: 0

DRUGS (1)
  1. ZYPREXA [Suspect]
     Indication: BIPOLAR DISORDER
     Dosage: UNK, UNKNOWN
     Dates: start: 199708, end: 20040109

REACTIONS (3)
  - Renal failure [Unknown]
  - Type 1 diabetes mellitus [Unknown]
  - General physical health deterioration [Unknown]
